FAERS Safety Report 15756734 (Version 5)
Quarter: 2022Q1

REPORT INFORMATION
  Report Type: Spontaneous
  Country: DE (occurrence: DE)
  Receive Date: 20181224
  Receipt Date: 20220103
  Transmission Date: 20220424
  Serious: Yes (Other)
  Sender: FDA-Public Use
  Company Number: DE-MEDAC-AL20171063

PATIENT
  Sex: Male
  Weight: 80 kg

DRUGS (5)
  1. PANITUMUMAB [Suspect]
     Active Substance: PANITUMUMAB
     Indication: Adenocarcinoma of colon
     Dosage: 480 MILLIGRAM
     Route: 042
     Dates: start: 20170131, end: 20170801
  2. FLUOROURACIL [Suspect]
     Active Substance: FLUOROURACIL
     Indication: Adenocarcinoma of colon
     Dosage: 5940 MILLIGRAM
     Route: 042
     Dates: start: 20170103, end: 20170801
  3. ONIVYDE [Suspect]
     Active Substance: IRINOTECAN HYDROCHLORIDE
     Indication: Adenocarcinoma of colon
     Dosage: 355 MILLIGRAM
     Route: 042
     Dates: start: 20170103, end: 20170801
  4. FOLATE SODIUM [Concomitant]
     Active Substance: FOLATE SODIUM
     Indication: Adenocarcinoma of colon
     Dosage: 760 MILLIGRAM
     Route: 042
     Dates: start: 20170103, end: 2017
  5. PALONOSETRON [Concomitant]
     Active Substance: PALONOSETRON
     Indication: Prophylaxis
     Dosage: 250 MICROGRAM (8 HOURS AND 40 MINUTES PRIOR TO CHEMOTHERAPY)
     Route: 065

REACTIONS (3)
  - Device related infection [Recovered/Resolved]
  - Skin infection [Recovered/Resolved]
  - Off label use [Unknown]

NARRATIVE: CASE EVENT DATE: 20170103
